FAERS Safety Report 16536493 (Version 1)
Quarter: 2019Q3

REPORT INFORMATION
  Report Type: Report from Study
  Country: BR (occurrence: BR)
  Receive Date: 20190706
  Receipt Date: 20190706
  Transmission Date: 20191004
  Serious: Yes (Hospitalization)
  Sender: FDA-Public Use
  Company Number: BR-TAKEDA-2018TUS017410

PATIENT
  Age: 32 Year
  Sex: Male

DRUGS (5)
  1. ATENOLOL. [Concomitant]
     Active Substance: ATENOLOL
     Indication: CARDIOMYOPATHY
     Dosage: 50 MILLIGRAM, BID
  2. AMIODARONE [Concomitant]
     Active Substance: AMIODARONE
     Indication: CARDIOMYOPATHY
     Dosage: 200 MILLIGRAM, BID
  3. VEDOLIZUMAB [Suspect]
     Active Substance: VEDOLIZUMAB
     Indication: CROHN^S DISEASE
     Dosage: 300 MILLIGRAM
     Route: 042
     Dates: start: 20170906
  4. NORIPURUM EV [Suspect]
     Active Substance: IRON POLYMALTOSE
     Indication: ANAEMIA
     Dosage: UNK UNK, 1/WEEK
     Route: 042
  5. VEDOLIZUMAB [Suspect]
     Active Substance: VEDOLIZUMAB
     Dosage: 300 MILLIGRAM, Q4WEEKS
     Route: 042
     Dates: start: 20190515

REACTIONS (3)
  - Off label use [Unknown]
  - Swelling face [Recovered/Resolved]
  - Crohn^s disease [Recovered/Resolved]

NARRATIVE: CASE EVENT DATE: 20171019
